FAERS Safety Report 7469711-8 (Version None)
Quarter: 2011Q2

REPORT INFORMATION
  Report Type: 
  Country: None (occurrence: None)
  Receive Date: 20110510
  Receipt Date: 20110505
  Transmission Date: 20111010
  Serious: Yes (Death, Hospitalization)
  Sender: FDA-Public Use
  Company Number: ZA-BRISTOL-MYERS SQUIBB COMPANY-15668205

PATIENT
  Age: 73 Year
  Sex: Female

DRUGS (4)
  1. METHOTREXATE [Suspect]
     Indication: RHEUMATOID ARTHRITIS
     Dates: start: 20060904, end: 20110428
  2. NOVACET [Concomitant]
     Dates: start: 20040504, end: 20110428
  3. CELEBREX [Concomitant]
     Dates: start: 20031210, end: 20110428
  4. ORENCIA [Suspect]
     Indication: RHEUMATOID ARTHRITIS
     Dosage: 10NOV2008-28APR2009-UNKNOWN-IV/SUBCUTANEOUS, 29APR2009-28FEB2011-125MG/WEEKLY SUBCUTANEOUS
     Route: 058
     Dates: start: 20090429

REACTIONS (2)
  - PNEUMONIA [None]
  - QUADRIPARESIS [None]
